FAERS Safety Report 21646542 (Version 1)
Quarter: 2022Q4

REPORT INFORMATION
  Report Type: Spontaneous
  Country: DK (occurrence: DK)
  Receive Date: 20221126
  Receipt Date: 20221126
  Transmission Date: 20230113
  Serious: Yes (Life-Threatening, Hospitalization)
  Sender: FDA-Public Use
  Company Number: None

PATIENT
  Age: 79 Year
  Sex: Female

DRUGS (2)
  1. OXYCODONE HYDROCHLORIDE [Suspect]
     Active Substance: OXYCODONE HYDROCHLORIDE
     Indication: Pain
     Dosage: STRENGTH: 5 MG, UNIT DOSE: 10 MG, FREQ TIME 1 DAY, DURATION 3 DAYS
     Dates: start: 20221021, end: 20221024
  2. OXYCODONE [Suspect]
     Active Substance: OXYCODONE
     Indication: Pain
     Dosage: 30 MILLIGRAM DAILY; DOSAGE: MAX 5 MG ONCE EVERY 4 HOURS, STRENGTH: 5 MG, DURATION 3 DAYS
     Dates: start: 20221021, end: 20221024

REACTIONS (4)
  - Confusional state [Unknown]
  - Miosis [Unknown]
  - Dysarthria [Unknown]
  - Toxicity to various agents [Unknown]

NARRATIVE: CASE EVENT DATE: 20221021
